FAERS Safety Report 9286599 (Version 1)
Quarter: 2013Q2

REPORT INFORMATION
  Report Type: Other
  Country: GB (occurrence: GB)
  Receive Date: 20130513
  Receipt Date: 20130513
  Transmission Date: 20140414
  Serious: Yes (Other)
  Sender: FDA-Public Use
  Company Number: GB-ACTAVIS-2013-07871

PATIENT
  Age: 55 Year
  Sex: Female

DRUGS (31)
  1. CARBOPLATIN (UNKNOWN) [Suspect]
     Indication: PRODUCT USED FOR UNKNOWN INDICATION
     Dosage: UNK, UNKNOWN
     Route: 065
  2. HERCEPTIN [Suspect]
     Indication: PRODUCT USED FOR UNKNOWN INDICATION
     Dosage: 550 MG, UNKNOWN
     Route: 042
  3. HERCEPTIN [Suspect]
     Dosage: 2 DOSES PER DAY: 1500 MG MORNING AND 1800 MG EVENING
     Route: 065
  4. HERCEPTIN [Suspect]
     Dosage: 390 MG, UNKNOWN
     Route: 042
  5. HERCEPTIN [Suspect]
     Dosage: 270 MG, UNKNOWN
     Route: 042
  6. HERCEPTIN [Suspect]
     Dosage: 400 MG, UNKNOWN
     Route: 065
  7. HERCEPTIN [Suspect]
     Dosage: 500 MG, UNKNOWN
     Route: 042
  8. HERCEPTIN [Suspect]
     Dosage: 400 MG, UNKNOWN
     Route: 042
  9. CAPECITABINE (UNKNOWN) [Suspect]
     Indication: PRODUCT USED FOR UNKNOWN INDICATION
     Dosage: 1500 MG MORNING AND 1800 MG EVENING
     Route: 065
  10. CAPECITABINE (UNKNOWN) [Suspect]
     Dosage: 1500 MG EVEINING AND 1300 MG MORNING
     Route: 065
  11. CAPECITABINE (UNKNOWN) [Suspect]
     Dosage: UNK, UNKNOWN
     Route: 065
  12. DOCETAXEL (UNKNOWN) [Suspect]
     Indication: PRODUCT USED FOR UNKNOWN INDICATION
     Dosage: 130 MG, UNKNOWN
     Route: 042
     Dates: start: 20041123
  13. PACLITAXEL (UNKNOWN) [Suspect]
     Indication: PRODUCT USED FOR UNKNOWN INDICATION
     Dosage: 80 MG/M2, UNKNOWN
     Route: 065
  14. PACLITAXEL (UNKNOWN) [Suspect]
     Dosage: 200 MG, UNKNOWN
     Route: 042
  15. PACLITAXEL (UNKNOWN) [Suspect]
     Dosage: 120 MG, UNKNOWN
     Route: 065
     Dates: start: 20081030
  16. PACLITAXEL (UNKNOWN) [Suspect]
     Dosage: 110 MG/M2, UNKNOWN
     Route: 065
  17. AVASTIN /00848101/ [Suspect]
     Indication: PRODUCT USED FOR UNKNOWN INDICATION
     Dosage: 10 MG/KG, UNKNOWN
     Route: 065
  18. TYVERB [Suspect]
     Indication: PRODUCT USED FOR UNKNOWN INDICATION
     Dosage: 750 MG, UNKNOWN
     Route: 065
     Dates: start: 20120507
  19. TYVERB [Suspect]
     Dosage: 1250 MG, DAILY
     Route: 065
     Dates: start: 20090925
  20. TYVERB [Suspect]
     Dosage: UNK
  21. VINORELBINE (UNKNOWN) [Suspect]
     Indication: PRODUCT USED FOR UNKNOWN INDICATION
     Dosage: 50 MG, UNKNOWN
     Route: 042
     Dates: start: 20051209
  22. VINORELBINE (UNKNOWN) [Suspect]
     Dosage: 55 UNK, UNK
     Route: 042
     Dates: start: 20060403
  23. TAVEGIL                            /00137201/ [Concomitant]
     Indication: PRODUCT USED FOR UNKNOWN INDICATION
     Dosage: UNK UNK, UNKNOWN
     Route: 065
  24. ZANTAC 150 MAXIMUM STRENGTH [Concomitant]
     Indication: PRODUCT USED FOR UNKNOWN INDICATION
     Dosage: UNK UNK, UNKNOWN
     Route: 065
  25. SOLU MEDROL [Concomitant]
     Indication: PRODUCT USED FOR UNKNOWN INDICATION
     Dosage: UNK UNK, UNKNOWN
     Route: 065
  26. TEMESTA                            /00273201/ [Concomitant]
     Indication: PRODUCT USED FOR UNKNOWN INDICATION
     Dosage: UNK UNK, UNKNOWN
     Route: 065
  27. PREDNISOLON                        /00016201/ [Concomitant]
     Indication: PRODUCT USED FOR UNKNOWN INDICATION
     Dosage: UNK UNK, UNKNOWN
     Route: 065
  28. KYTRIL [Concomitant]
     Indication: PRODUCT USED FOR UNKNOWN INDICATION
     Dosage: UNK UNK, UNKNOWN
     Route: 065
  29. EMPERAL [Concomitant]
     Indication: PRODUCT USED FOR UNKNOWN INDICATION
     Dosage: UNK UNK, UNKNOWN
     Route: 065
  30. ZOFRAN                             /00955301/ [Concomitant]
     Indication: PRODUCT USED FOR UNKNOWN INDICATION
     Dosage: UNK UNK, UNKNOWN
     Route: 065
  31. CORODIL                            /00042901/ [Concomitant]
     Indication: PRODUCT USED FOR UNKNOWN INDICATION
     Dosage: UNK UNK, UNKNOWN
     Route: 065

REACTIONS (36)
  - Disease progression [Unknown]
  - Ejection fraction decreased [Unknown]
  - Paraesthesia [Unknown]
  - Dysaesthesia [Unknown]
  - Nausea [Recovering/Resolving]
  - Abdominal discomfort [Recovering/Resolving]
  - Headache [Recovering/Resolving]
  - Influenza like illness [Unknown]
  - Fatigue [Unknown]
  - Dysgeusia [Recovering/Resolving]
  - Dyspnoea [Unknown]
  - Heart rate irregular [Recovering/Resolving]
  - Dry mouth [Unknown]
  - Constipation [Unknown]
  - Nail disorder [Recovered/Resolved]
  - Fluid retention [Not Recovered/Not Resolved]
  - Lymphoedema [Recovered/Resolved]
  - Calcium ionised increased [Unknown]
  - Diarrhoea [Unknown]
  - Sensory disturbance [Not Recovered/Not Resolved]
  - Neurological symptom [Unknown]
  - Skin ulcer [Unknown]
  - Chest pain [Unknown]
  - Sleep disorder [Unknown]
  - Myalgia [Unknown]
  - Malaise [Recovered/Resolved]
  - Neutropenia [Not Recovered/Not Resolved]
  - Rash pustular [Unknown]
  - Skin fissures [Recovered/Resolved]
  - Cough [Unknown]
  - Vulvovaginal dryness [Not Recovered/Not Resolved]
  - Nasal ulcer [Unknown]
  - Erythema [Unknown]
  - Local swelling [Unknown]
  - Lip swelling [Unknown]
  - Cheilitis [Unknown]
